FAERS Safety Report 11981820 (Version 2)
Quarter: 2016Q2

REPORT INFORMATION
  Report Type: Spontaneous
  Country: US (occurrence: US)
  Receive Date: 20160201
  Receipt Date: 20160405
  Transmission Date: 20160815
  Serious: Yes (Other)
  Sender: FDA-Public Use
  Company Number: US-ASTRAZENECA-2016SE06402

PATIENT
  Age: 31655 Day
  Sex: Female
  Weight: 52.6 kg

DRUGS (20)
  1. TUDORZA PRESSAIR [Suspect]
     Active Substance: ACLIDINIUM BROMIDE
     Indication: OXYGEN SUPPLEMENTATION
     Route: 055
     Dates: start: 201503
  2. METOPROLOL TARTRATE. [Concomitant]
     Active Substance: METOPROLOL TARTRATE
     Indication: BLOOD PRESSURE ABNORMAL
     Route: 048
  3. AMLODIPINE BESYLATE. [Concomitant]
     Active Substance: AMLODIPINE BESYLATE
     Indication: BLOOD PRESSURE ABNORMAL
     Route: 048
  4. CALCIUM [Concomitant]
     Active Substance: CALCIUM
     Indication: OSTEOPOROSIS
     Route: 048
  5. ASPIRIN. [Concomitant]
     Active Substance: ASPIRIN
     Indication: MYOCARDIAL INFARCTION
     Route: 048
  6. TUDORZA PRESSAIR [Suspect]
     Active Substance: ACLIDINIUM BROMIDE
     Indication: CHRONIC OBSTRUCTIVE PULMONARY DISEASE
     Route: 055
     Dates: start: 201503
  7. BENICAR [Concomitant]
     Active Substance: OLMESARTAN MEDOXOMIL
     Indication: BLOOD PRESSURE ABNORMAL
     Route: 048
  8. VALSARTAN-HYDROCHLORTHIAZIDE [Concomitant]
     Indication: BLOOD PRESSURE ABNORMAL
     Dosage: 160/25 MG, 1 DF DAILY
     Route: 048
  9. AMLODIPINE BESYLATE. [Concomitant]
     Active Substance: AMLODIPINE BESYLATE
     Indication: BLOOD PRESSURE ABNORMAL
     Dosage: TWO TIMES A DAY
     Route: 048
  10. CENTRUM [Concomitant]
     Active Substance: VITAMINS
     Indication: VITAMIN SUPPLEMENTATION
     Route: 048
  11. TRETINOIN. [Concomitant]
     Active Substance: TRETINOIN
     Dosage: APPLY TO FACE DAILY
  12. VITAMINS NOS [Concomitant]
     Active Substance: VITAMINS
     Indication: VITAMIN SUPPLEMENTATION
  13. OXYCODONE-ACETAMINOPHNE [Concomitant]
     Indication: PAIN
     Dosage: 5/325 MG, ONE TABLET FOUR TIMES A DAY, AS REQUIRED
     Route: 048
  14. SYMBICORT [Suspect]
     Active Substance: BUDESONIDE\FORMOTEROL FUMARATE DIHYDRATE
     Indication: OXYGEN SUPPLEMENTATION
     Dosage: TWO TIMES A DAY
     Route: 055
     Dates: start: 201412
  15. SYMBICORT [Suspect]
     Active Substance: BUDESONIDE\FORMOTEROL FUMARATE DIHYDRATE
     Indication: CHRONIC OBSTRUCTIVE PULMONARY DISEASE
     Dosage: TWO TIMES A DAY
     Route: 055
     Dates: start: 201412
  16. FUROSEMIDE. [Concomitant]
     Active Substance: FUROSEMIDE
     Route: 048
  17. PROLIA [Concomitant]
     Active Substance: DENOSUMAB
     Dosage: 60MG/ML, EVERY SIX MONTHS
  18. OMEGA-3 FATTY ACIDS [Concomitant]
     Active Substance: OMEGA-3 FATTY ACIDS
  19. DESONIDE. [Concomitant]
     Active Substance: DESONIDE
     Dosage: APLY TO RASH CONCERNS OF MOUTH, TWO TIMES A DAY AS REQUIRED.
  20. OXYCONTIN [Concomitant]
     Active Substance: OXYCODONE HYDROCHLORIDE
     Route: 048

REACTIONS (6)
  - Fall [Unknown]
  - Circumstance or information capable of leading to medication error [Unknown]
  - Osteoporotic fracture [Recovered/Resolved]
  - Body height decreased [Unknown]
  - Rib fracture [Unknown]
  - Product quality issue [Unknown]

NARRATIVE: CASE EVENT DATE: 20160112
